FAERS Safety Report 18276943 (Version 1)
Quarter: 2020Q3

REPORT INFORMATION
  Report Type: Spontaneous
  Country: IT (occurrence: IT)
  Receive Date: 20200917
  Receipt Date: 20200917
  Transmission Date: 20201103
  Serious: Yes (Death, Hospitalization, Other)
  Sender: FDA-Public Use
  Company Number: IT-SUN PHARMACEUTICAL INDUSTRIES LTD-2020RR-260854

PATIENT
  Age: 73 Year
  Sex: Male

DRUGS (3)
  1. GEMCITABINE. [Suspect]
     Active Substance: GEMCITABINE
     Dosage: 1000 MILLIGRAM/SQ. METER, EVERY 3 WEEKS
     Route: 065
  2. OXALIPLATIN. [Suspect]
     Active Substance: OXALIPLATIN
     Indication: ADENOCARCINOMA PANCREAS
     Dosage: 100 MILLIGRAM/SQ. METER, 1DOSE/2 WEEKS
     Route: 065
     Dates: start: 200708
  3. GEMCITABINE. [Suspect]
     Active Substance: GEMCITABINE
     Indication: ADENOCARCINOMA PANCREAS
     Dosage: 1000 MILLIGRAM/SQ. METER, 1DOSE/2 WEEKS
     Route: 065
     Dates: start: 200708

REACTIONS (4)
  - Thrombocytopenia [Unknown]
  - Therapy partial responder [Unknown]
  - Neurotoxicity [Unknown]
  - Disease progression [Unknown]
